FAERS Safety Report 20748330 (Version 10)
Quarter: 2025Q1

REPORT INFORMATION
  Report Type: Report from Study
  Country: DE (occurrence: DE)
  Receive Date: 20220426
  Receipt Date: 20250113
  Transmission Date: 20250408
  Serious: No
  Sender: ROCHE
  Company Number: DE-ROCHE-2607169

PATIENT
  Age: 54 Year
  Sex: Female

DRUGS (8)
  1. OCREVUS [Suspect]
     Active Substance: OCRELIZUMAB
     Indication: Relapsing-remitting multiple sclerosis
     Dosage: 600MG 184 AND 189 DAYS
     Route: 042
     Dates: start: 20200211
  2. OCREVUS [Suspect]
     Active Substance: OCRELIZUMAB
     Route: 042
  3. OCREVUS [Suspect]
     Active Substance: OCRELIZUMAB
     Route: 042
     Dates: start: 20210201
  4. OCREVUS [Suspect]
     Active Substance: OCRELIZUMAB
     Route: 042
  5. METOPROLOL [Concomitant]
     Active Substance: METOPROLOL
  6. METOPROLOL [Concomitant]
     Active Substance: METOPROLOL
  7. BIOTIN [Concomitant]
     Active Substance: BIOTIN
  8. CYANOCOBALAMIN [Concomitant]
     Active Substance: CYANOCOBALAMIN

REACTIONS (11)
  - Feeling hot [Recovered/Resolved]
  - Gait disturbance [Not Recovered/Not Resolved]
  - Paraesthesia [Not Recovered/Not Resolved]
  - Fatigue [Not Recovered/Not Resolved]
  - COVID-19 [Recovered/Resolved]
  - Cystitis noninfective [Recovered/Resolved]
  - Hepatic function abnormal [Recovered/Resolved]
  - Skin laceration [Recovered/Resolved]
  - Fall [Unknown]
  - Osteoporosis [Unknown]
  - Pain in extremity [Recovered/Resolved]

NARRATIVE: CASE EVENT DATE: 20200401
